FAERS Safety Report 17489711 (Version 1)
Quarter: 2020Q1

REPORT INFORMATION
  Report Type: Spontaneous
  Country: US (occurrence: US)
  Receive Date: 20200303
  Receipt Date: 20200303
  Transmission Date: 20200409
  Serious: No
  Sender: FDA-Public Use
  Company Number: US-009507513-2002USA011135

PATIENT
  Age: 37 Year
  Sex: Female

DRUGS (4)
  1. AMOXICILLIN. [Concomitant]
     Active Substance: AMOXICILLIN
  2. ZYRTEC [Concomitant]
     Active Substance: CETIRIZINE HYDROCHLORIDE
     Dosage: UNK
  3. ASPIRIN. [Concomitant]
     Active Substance: ASPIRIN
  4. PREGNYL [Suspect]
     Active Substance: CHORIOGONADOTROPIN ALFA
     Indication: INFERTILITY FEMALE
     Dosage: (STENGTH 10000 UNIT), DOSE 10000 UNITS AS DIRECTED
     Route: 058
     Dates: start: 20190731

REACTIONS (8)
  - Peripheral swelling [Unknown]
  - Chills [Unknown]
  - Rash [Unknown]
  - Pain [Unknown]
  - Arthralgia [Unknown]
  - Arthropathy [Unknown]
  - Musculoskeletal stiffness [Unknown]
  - Pyrexia [Unknown]

NARRATIVE: CASE EVENT DATE: 20191106
